FAERS Safety Report 8202789-2 (Version None)
Quarter: 2012Q1

REPORT INFORMATION
  Report Type: 
  Country: None (occurrence: None)
  Receive Date: 20120312
  Receipt Date: 20120312
  Transmission Date: 20120608
  Serious: Yes (Death, Hospitalization)
  Sender: FDA-Public Use
  Company Number: None

PATIENT
  Age: 63 Year
  Sex: Female
  Weight: 63.502 kg

DRUGS (13)
  1. POTASSIUM [Concomitant]
  2. INVEGA [Suspect]
     Indication: SCHIZOPHRENIA
     Dosage: 3 MG DAILY X 2; 6 MG DAILY X 6
     Route: 048
     Dates: start: 20120222, end: 20120229
  3. CALCIUM [Concomitant]
  4. SULINDAC [Concomitant]
  5. SIMVASTATIN [Concomitant]
  6. MULTIPLE PSYCHIATRIC MED [Concomitant]
  7. MAGNESIUM [Concomitant]
  8. LEVOTHYROXINE SODIUM [Concomitant]
  9. AMILORIDE HYDROCHLORIDE [Concomitant]
  10. AMLODIPINE [Concomitant]
  11. DIVALPROEX SODIUM [Concomitant]
  12. INVEGA INJECTION [Concomitant]
     Indication: SCHIZOPHRENIA
     Dosage: 117 MG
     Route: 030
     Dates: start: 20120228, end: 20120228
  13. MONTELUCAST [Concomitant]

REACTIONS (6)
  - ASPIRATION [None]
  - ACUTE RESPIRATORY FAILURE [None]
  - SUPRAVENTRICULAR TACHYCARDIA [None]
  - HYPERCAPNIA [None]
  - COMA [None]
  - CARDIO-RESPIRATORY ARREST [None]
